FAERS Safety Report 6455227-4 (Version None)
Quarter: 2009Q4

REPORT INFORMATION
  Report Type: 
  Country: None (occurrence: None)
  Receive Date: 20091119
  Receipt Date: 20091113
  Transmission Date: 20100525
  Serious: Yes (Death)
  Sender: FDA-Public Use
  Company Number: TPA2009A03738

PATIENT
  Age: 22 Year
  Sex: Male

DRUGS (11)
  1. PREVACID [Suspect]
     Indication: GASTROOESOPHAGEAL REFLUX DISEASE
     Dosage: 30 MG, 1 IN 1 D, PER ORAL
     Route: 048
     Dates: end: 20091031
  2. SIMVASTATIN [Concomitant]
  3. DIOVAN [Concomitant]
  4. COUMADIN [Concomitant]
  5. COREG [Concomitant]
  6. CELLCEPT [Concomitant]
  7. RAPAMUNE [Concomitant]
  8. PLAVIX [Concomitant]
  9. POTASSIUM CHLORIDE [Concomitant]
  10. ACTONEL (RISEDRONATE CHLORIDE) [Concomitant]
  11. ASPIRIN [Concomitant]

REACTIONS (1)
  - DEATH [None]
